FAERS Safety Report 9989629 (Version 1)
Quarter: 2014Q1

REPORT INFORMATION
  Report Type: Spontaneous
  Country: US (occurrence: US)
  Receive Date: 20140310
  Receipt Date: 20140310
  Transmission Date: 20141002
  Serious: Yes (Hospitalization)
  Sender: FDA-Public Use
  Company Number: US-UCBSA-113796

PATIENT
  Age: 48 Year
  Sex: Male
  Weight: 62.7 kg

DRUGS (5)
  1. BACLOFEN [Suspect]
     Indication: CONVULSION
  2. KEPPRA [Interacting]
     Indication: CONVULSION
  3. ERAXIS [Interacting]
     Indication: URINARY TRACT INFECTION FUNGAL
     Dates: start: 20130910, end: 20130919
  4. XANAX [Concomitant]
  5. CYMBALTA [Concomitant]

REACTIONS (2)
  - Convulsion [Recovered/Resolved]
  - Drug interaction [Unknown]
